FAERS Safety Report 8168592-7 (Version None)
Quarter: 2012Q1

REPORT INFORMATION
  Report Type: 
  Country: None (occurrence: None)
  Receive Date: 20120227
  Receipt Date: 20120227
  Transmission Date: 20120608
  Serious: Yes (Hospitalization)
  Sender: FDA-Public Use
  Company Number: None

PATIENT
  Age: 68 Year
  Sex: Female
  Weight: 58.513 kg

DRUGS (2)
  1. EVISTA [Suspect]
     Indication: MENOPAUSE
     Dosage: ONE PILL
     Route: 048
     Dates: start: 19980101, end: 20110531
  2. EVISTA [Suspect]
     Indication: BONE SCAN
     Dosage: ONE PILL
     Route: 048
     Dates: start: 19980101, end: 20110531

REACTIONS (2)
  - CONVULSION [None]
  - CEREBROVASCULAR ACCIDENT [None]
